FAERS Safety Report 4871487-5 (Version None)
Quarter: 2005Q4

REPORT INFORMATION
  Report Type: 
  Country: None (occurrence: None)
  Receive Date: 20051229
  Receipt Date: 20051221
  Transmission Date: 20060501
  Serious: Yes (Hospitalization)
  Sender: FDA-Public Use
  Company Number: 2005BI021621

PATIENT
  Age: 54 Year
  Sex: Male

DRUGS (8)
  1. AMEVIVE [Suspect]
     Indication: PSORIASIS
     Dosage: 15 MG;QW;IM
     Route: 030
     Dates: start: 20050228, end: 20050606
  2. AMEVIVE [Suspect]
     Indication: PSORIASIS
     Dosage: 15 MG;QW;IM
     Route: 030
     Dates: start: 20050929
  3. LASIX [Concomitant]
  4. ATENOLOL [Concomitant]
  5. LOTREL [Concomitant]
  6. ASPIRIN [Concomitant]
  7. LOVASTATIN [Concomitant]
  8. METFORMIN [Concomitant]

REACTIONS (1)
  - VERTIGO [None]
